FAERS Safety Report 17461807 (Version 1)
Quarter: 2020Q1

REPORT INFORMATION
  Report Type: Spontaneous
  Country: IT (occurrence: IT)
  Receive Date: 20200226
  Receipt Date: 20200226
  Transmission Date: 20200409
  Serious: Yes (Hospitalization)
  Sender: FDA-Public Use
  Company Number: IT-MYLANLABS-2020M1020456

PATIENT
  Age: 74 Year
  Sex: Male

DRUGS (6)
  1. EZETIMIBE/SIMVASTATIN [Concomitant]
     Active Substance: EZETIMIBE\SIMVASTATIN
     Indication: MYOCARDIAL ISCHAEMIA
     Dosage: UNK
  2. BETAXOLOL. [Concomitant]
     Active Substance: BETAXOLOL
     Indication: MYOCARDIAL ISCHAEMIA
     Dosage: UNK
  3. TRIFLUSAL [Suspect]
     Active Substance: TRIFLUSAL
     Indication: MYOCARDIAL ISCHAEMIA
     Dosage: 600 MG
  4. LITHIUM. [Suspect]
     Active Substance: LITHIUM
     Indication: BIPOLAR DISORDER
     Dosage: 900 MG DAILY
  5. HYDROCHLOROTHIAZIDE/IRBESARTAN [Suspect]
     Active Substance: HYDROCHLOROTHIAZIDE\IRBESARTAN
     Indication: MYOCARDIAL ISCHAEMIA
     Dosage: 300/12 MG DAILY/300 + 12 MG
  6. THYROXINE [Concomitant]
     Active Substance: LEVOTHYROXINE
     Indication: HYPOTHYROIDISM
     Dosage: UNK

REACTIONS (1)
  - Toxicity to various agents [Recovered/Resolved with Sequelae]
